FAERS Safety Report 23130525 (Version 1)
Quarter: 2023Q4

REPORT INFORMATION
  Report Type: Spontaneous
  Country: IT (occurrence: IT)
  Receive Date: 20231031
  Receipt Date: 20231031
  Transmission Date: 20240110
  Serious: Yes (Other)
  Sender: FDA-Public Use
  Company Number: IT-SUN PHARMACEUTICAL INDUSTRIES LTD-2023RR-415392

PATIENT
  Age: 39 Year
  Sex: Male
  Weight: 84 kg

DRUGS (2)
  1. CIPROFLOXACIN [Suspect]
     Active Substance: CIPROFLOXACIN
     Indication: Epididymitis
     Dosage: UNK
     Route: 048
     Dates: start: 2009, end: 2009
  2. PREDNISONE [Suspect]
     Active Substance: PREDNISONE
     Indication: Epididymitis
     Dosage: UNK
     Route: 048
     Dates: start: 2009, end: 2009

REACTIONS (2)
  - Depression [Recovering/Resolving]
  - Muscle rigidity [Recovering/Resolving]

NARRATIVE: CASE EVENT DATE: 20130101
